FAERS Safety Report 13777380 (Version 3)
Quarter: 2018Q1

REPORT INFORMATION
  Report Type: Spontaneous
  Country: FI (occurrence: FI)
  Receive Date: 20170721
  Receipt Date: 20180115
  Transmission Date: 20180508
  Serious: Yes (Hospitalization, Other)
  Sender: FDA-Public Use
  Company Number: FI-MYLANLABS-2017M1037681

PATIENT
  Age: 60 Year
  Sex: Female

DRUGS (4)
  1. INSULIN [Concomitant]
     Active Substance: INSULIN NOS
     Indication: TYPE 2 DIABETES MELLITUS
     Dosage: UNK
  2. LEPONEX [Suspect]
     Active Substance: CLOZAPINE
     Dosage: 87.5 MG, QD
     Dates: start: 2017, end: 2017
  3. LEPONEX [Suspect]
     Active Substance: CLOZAPINE
     Indication: PRODUCT USED FOR UNKNOWN INDICATION
     Dosage: UNK
     Dates: start: 20170515
  4. LEPONEX [Suspect]
     Active Substance: CLOZAPINE
     Dosage: 200 MG, QD
     Dates: start: 201706, end: 201706

REACTIONS (15)
  - Haemoglobin decreased [Unknown]
  - Carbohydrate antigen 125 increased [Recovered/Resolved]
  - Pyrexia [Recovering/Resolving]
  - Diarrhoea [Recovering/Resolving]
  - C-reactive protein increased [Recovering/Resolving]
  - Hepatic enzyme increased [Recovering/Resolving]
  - Tooth infection [Unknown]
  - Red blood cell count decreased [Unknown]
  - Atrial fibrillation [Not Recovered/Not Resolved]
  - Functional gastrointestinal disorder [Recovering/Resolving]
  - Product quality issue [Unknown]
  - Gastroenteritis [Recovered/Resolved]
  - Platelet count increased [Unknown]
  - International normalised ratio decreased [Unknown]
  - Large intestine polyp [Unknown]

NARRATIVE: CASE EVENT DATE: 2017
